FAERS Safety Report 9055104 (Version 3)
Quarter: 2013Q1

REPORT INFORMATION
  Report Type: Report from Study
  Country: NL (occurrence: NL)
  Receive Date: 20130206
  Receipt Date: 20130318
  Transmission Date: 20140127
  Serious: Yes (Hospitalization)
  Sender: FDA-Public Use
  Company Number: PHHO2013NL001936

PATIENT
  Age: 72 Year
  Sex: 0

DRUGS (7)
  1. AFINITOR [Suspect]
     Indication: RENAL CANCER METASTATIC
     Dosage: 10 MG, QD
     Route: 048
     Dates: start: 20130118
  2. AFINITOR [Suspect]
     Dosage: UNK
     Route: 048
  3. VOTRIENT [Suspect]
     Indication: RENAL CANCER METASTATIC
     Dosage: 500 MG, QD
     Route: 048
     Dates: start: 20121122
  4. PANTOPRAZOL [Concomitant]
     Dosage: 40 MG, UNK
     Dates: start: 20100730
  5. METOCLOPRAMIDE [Concomitant]
     Dosage: 10 MG, PRN
     Dates: start: 20121109
  6. PARACETAMOL [Concomitant]
     Dosage: 1000 MG, PRN
     Dates: start: 20130117
  7. TRAMADOL [Concomitant]
     Dosage: 80 MG, UNK

REACTIONS (1)
  - Hypercalcaemia [Not Recovered/Not Resolved]
